FAERS Safety Report 14815051 (Version 2)
Quarter: 2018Q2

REPORT INFORMATION
  Report Type: Spontaneous
  Country: US (occurrence: US)
  Receive Date: 20180426
  Receipt Date: 20180523
  Transmission Date: 20180711
  Serious: No
  Sender: FDA-Public Use
  Company Number: US-INCYTE CORPORATION-2018IN003685

PATIENT

DRUGS (1)
  1. JAKAFI [Suspect]
     Active Substance: RUXOLITINIB
     Indication: IRON DEFICIENCY ANAEMIA
     Dosage: 20 MG, BID
     Route: 048
     Dates: start: 201704

REACTIONS (3)
  - Blood potassium increased [Recovered/Resolved]
  - Off label use [Unknown]
  - Chest pain [Unknown]
